FAERS Safety Report 10425275 (Version 1)
Quarter: 2014Q3

REPORT INFORMATION
  Report Type: Spontaneous
  Country: JP (occurrence: JP)
  Receive Date: 20140902
  Receipt Date: 20140902
  Transmission Date: 20150326
  Serious: Yes (Other)
  Sender: FDA-Public Use
  Company Number: PHHY2013JP161837

PATIENT
  Age: 45 Year
  Sex: Male

DRUGS (2)
  1. GLIVEC [Suspect]
     Active Substance: IMATINIB MESYLATE
     Indication: CHRONIC MYELOID LEUKAEMIA
     Dosage: 400 MG, DAILY
     Dates: start: 20040602
  2. GLIVEC [Suspect]
     Active Substance: IMATINIB MESYLATE
     Dosage: 200MG FOR 1ST ONE YEAR, MAINTAINED 200 MG AS OF 27 MAR2009

REACTIONS (3)
  - Blood disorder [Unknown]
  - Muscle spasms [Unknown]
  - Interstitial lung disease [Unknown]
